FAERS Safety Report 4496637-4 (Version None)
Quarter: 2004Q4

REPORT INFORMATION
  Report Type: 
  Country: None (occurrence: None)
  Receive Date: 20040923
  Receipt Date: 20040810
  Transmission Date: 20050328
  Serious: No
  Sender: FDA-Public Use
  Company Number: WAES 0408USA01056

PATIENT
  Sex: Male

DRUGS (1)
  1. INVANZ [Suspect]
     Dosage: 1 GM/DAILY/IV
     Route: 042

REACTIONS (2)
  - NEPHRITIS INTERSTITIAL [None]
  - OBSTRUCTION [None]
